FAERS Safety Report 9865563 (Version 2)
Quarter: 2014Q1

REPORT INFORMATION
  Report Type: Spontaneous
  Country: US (occurrence: US)
  Receive Date: 20140203
  Receipt Date: 20140203
  Transmission Date: 20141002
  Serious: No
  Sender: FDA-Public Use
  Company Number: US-ALLERGAN-1305283US

PATIENT
  Age: 78 Year
  Sex: Female

DRUGS (8)
  1. RESTASIS [Suspect]
     Indication: DRY EYE
     Dosage: UNK, BID
     Route: 047
     Dates: start: 201206
  2. CLARITIN                           /00413701/ [Concomitant]
     Indication: SEASONAL ALLERGY
  3. CLARITIN                           /00413701/ [Concomitant]
     Indication: SINUS DISORDER
  4. METOPROLOL [Concomitant]
     Indication: HYPERTENSION
  5. LASIX                              /00032601/ [Concomitant]
     Indication: FLUID RETENTION
     Dosage: UNK
  6. POTASSIUM [Concomitant]
     Indication: MINERAL SUPPLEMENTATION
  7. THYROID MEDICATION NOS [Concomitant]
     Indication: DYSPHAGIA
  8. UNSPECIFIED LUBRICATING EYE DROP [Concomitant]
     Indication: DRY EYE

REACTIONS (2)
  - Vitreous floaters [Not Recovered/Not Resolved]
  - Foreign body sensation in eyes [Not Recovered/Not Resolved]
